FAERS Safety Report 7335594-X (Version None)
Quarter: 2011Q1

REPORT INFORMATION
  Report Type: 
  Country: None (occurrence: None)
  Receive Date: 20110301
  Receipt Date: 20110301
  Transmission Date: 20110831
  Serious: Yes (Other)
  Sender: FDA-Public Use
  Company Number: None

PATIENT
  Sex: Male
  Weight: 99.7913 kg

DRUGS (1)
  1. LEVOFLOXACIN [Suspect]
     Indication: PNEUMONIA
     Dosage: ONE TAB DAILY PO
     Route: 048
     Dates: start: 20110218, end: 20110223

REACTIONS (3)
  - IRRITABILITY [None]
  - DEPRESSION [None]
  - AGGRESSION [None]
